FAERS Safety Report 5243410-5 (Version None)
Quarter: 2007Q1

REPORT INFORMATION
  Report Type: 
  Country: None (occurrence: None)
  Receive Date: 20061201
  Receipt Date: 20060818
  Transmission Date: 20070707
  Serious: No
  Sender: FDA-Public Use
  Company Number: 2006PV019714

PATIENT
  Age: 71 Year
  Sex: Female
  Weight: 112.0385 kg

DRUGS (2)
  1. BYETTA [Suspect]
     Indication: DIABETES MELLITUS NON-INSULIN-DEPENDENT
     Dosage: SEE IMAGE
     Route: 058
     Dates: start: 20060608, end: 20060709
  2. BYETTA [Suspect]
     Indication: DIABETES MELLITUS NON-INSULIN-DEPENDENT
     Dosage: SEE IMAGE
     Route: 058
     Dates: start: 20060711

REACTIONS (9)
  - BLOOD GLUCOSE DECREASED [None]
  - CONSTIPATION [None]
  - CYSTITIS [None]
  - EARLY SATIETY [None]
  - EYELID FUNCTION DISORDER [None]
  - GASTROOESOPHAGEAL REFLUX DISEASE [None]
  - INJECTION SITE PAIN [None]
  - NAUSEA [None]
  - WEIGHT DECREASED [None]
